FAERS Safety Report 8887531 (Version 1)
Quarter: 2012Q4

REPORT INFORMATION
  Report Type: Spontaneous
  Country: SE (occurrence: None)
  Receive Date: 20121031
  Receipt Date: 20121031
  Transmission Date: 20130627
  Serious: Yes (Hospitalization)
  Sender: FDA-Public Use
  Company Number: SE-GDP-12415395

PATIENT
  Age: 40 Year
  Sex: Female

DRUGS (1)
  1. ROZEX (METRONIDAZOLE) [Suspect]
     Indication: RASH
     Route: 061
     Dates: start: 20120830, end: 20120901

REACTIONS (7)
  - Pharyngeal oedema [None]
  - Swelling face [None]
  - Burning sensation [None]
  - Papule [None]
  - Rosacea [None]
  - Erythema [None]
  - Blister [None]
